FAERS Safety Report 9437597 (Version 2)
Quarter: 2015Q4

REPORT INFORMATION
  Report Type: Report from Study
  Country: US (occurrence: US)
  Receive Date: 20130802
  Receipt Date: 20151015
  Transmission Date: 20160305
  Serious: Yes (Hospitalization)
  Sender: FDA-Public Use
  Company Number: US-ROCHE-1254543

PATIENT
  Age: 29 Year
  Sex: Male
  Weight: 170.27 kg

DRUGS (14)
  1. ALBUTEROL. [Concomitant]
     Active Substance: ALBUTEROL
     Indication: COUGH
     Dosage: 4 TIME DAILY
     Route: 065
     Dates: start: 200301
  2. PREDNISONE. [Concomitant]
     Active Substance: PREDNISONE
     Dosage: FOR 3 DAYS
     Route: 048
  3. XOLAIR [Suspect]
     Active Substance: OMALIZUMAB
     Indication: ASTHMA
     Route: 058
  4. SINGULAIR [Concomitant]
     Active Substance: MONTELUKAST SODIUM
     Route: 065
     Dates: start: 200301
  5. ADVAIR HFA [Concomitant]
     Active Substance: FLUTICASONE PROPIONATE\SALMETEROL XINAFOATE
     Dosage: 500-50 MCG
     Route: 055
  6. ADVAIR HFA [Concomitant]
     Active Substance: FLUTICASONE PROPIONATE\SALMETEROL XINAFOATE
     Dosage: 500-50 MCG
     Route: 065
     Dates: start: 200301
  7. LORATADINE. [Concomitant]
     Active Substance: LORATADINE
     Route: 065
  8. ZITHROMAX [Concomitant]
     Active Substance: AZITHROMYCIN DIHYDRATE
  9. ALBUTEROL. [Concomitant]
     Active Substance: ALBUTEROL
     Indication: WHEEZING
     Route: 055
  10. PREDNISONE. [Concomitant]
     Active Substance: PREDNISONE
     Route: 065
  11. XOPENEX [Concomitant]
     Active Substance: LEVALBUTEROL HYDROCHLORIDE
  12. SINGULAIR [Concomitant]
     Active Substance: MONTELUKAST SODIUM
     Route: 065
  13. PREDNISONE. [Concomitant]
     Active Substance: PREDNISONE
     Route: 065
     Dates: start: 201106
  14. COMBIVENT [Concomitant]
     Active Substance: ALBUTEROL SULFATE\IPRATROPIUM BROMIDE
     Dosage: 18/103 MCG
     Route: 055
     Dates: start: 201101

REACTIONS (6)
  - Wheezing [Unknown]
  - Dyspnoea [Unknown]
  - Bronchitis [Unknown]
  - Asthma [Unknown]
  - Cough [Unknown]
  - Rhinitis allergic [Unknown]

NARRATIVE: CASE EVENT DATE: 20130124
